FAERS Safety Report 5264082-X (Version None)
Quarter: 2007Q1

REPORT INFORMATION
  Report Type: 
  Country: None (occurrence: None)
  Receive Date: 20070309
  Receipt Date: 20070306
  Transmission Date: 20070707
  Serious: Yes (Death)
  Sender: FDA-Public Use
  Company Number: 2007-00580

PATIENT
  Age: 64 Year
  Sex: Female

DRUGS (2)
  1. VELCADE [Suspect]
     Indication: MULTIPLE MYELOMA
     Dosage: 1.00 MG/M2, UNK, UNKNOWN
     Dates: start: 20070219, end: 20070226
  2. DECADRON [Concomitant]

REACTIONS (2)
  - PNEUMONIA ASPIRATION [None]
  - SEPSIS [None]
